FAERS Safety Report 9399835 (Version 1)
Quarter: 2013Q3

REPORT INFORMATION
  Report Type: Spontaneous
  Country: GB (occurrence: GB)
  Receive Date: 20130715
  Receipt Date: 20130715
  Transmission Date: 20140515
  Serious: Yes (Hospitalization, Other)
  Sender: FDA-Public Use
  Company Number: PHFR2013GB002202

PATIENT
  Age: 48 Year
  Sex: Male

DRUGS (8)
  1. CLOZARIL [Suspect]
     Indication: SCHIZOPHRENIA
     Dosage: UNK
     Route: 048
     Dates: start: 19940509
  2. CLOZARIL [Suspect]
     Dosage: UNK
     Dates: start: 20130422
  3. ZAPONEX [Concomitant]
     Dosage: UNK UKN, UNK
     Dates: start: 20130522
  4. FERROUS SULPHATE [Concomitant]
     Indication: ANAEMIA
     Dosage: 200 MG, UNK
     Route: 048
     Dates: start: 201305
  5. LOPERAMIDE [Concomitant]
     Indication: DIARRHOEA
     Dosage: 4 MG, UNK
     Route: 048
  6. CODEIN [Concomitant]
     Indication: PAIN
     Dosage: 60 MG, QD
     Route: 048
  7. LEVOMEPROMAZINE [Concomitant]
     Indication: NAUSEA
     Dosage: 12.5 MG, UNK
     Route: 048
  8. RANITIDINE [Concomitant]
     Indication: GASTROOESOPHAGEAL REFLUX DISEASE
     Dosage: 150 MG, BID
     Route: 048

REACTIONS (3)
  - Systemic inflammatory response syndrome [Recovered/Resolved]
  - Mental impairment [Unknown]
  - Schizophrenia [Unknown]
